FAERS Safety Report 25167380 (Version 1)
Quarter: 2025Q2

REPORT INFORMATION
  Report Type: Spontaneous
  Country: US (occurrence: None)
  Receive Date: 20250405
  Receipt Date: 20250405
  Transmission Date: 20250717
  Serious: Yes (Hospitalization)
  Sender: FDA-CTU
  Company Number: None

PATIENT
  Age: 28 Year
  Sex: Male
  Weight: 74.2 kg

DRUGS (4)
  1. CISPLATIN [Suspect]
     Active Substance: CISPLATIN
  2. FILGRASTIM [Suspect]
     Active Substance: FILGRASTIM
  3. IFOSFAMIDE [Suspect]
     Active Substance: IFOSFAMIDE
  4. TAXOL [Suspect]
     Active Substance: PACLITAXEL

REACTIONS (14)
  - Febrile neutropenia [None]
  - Oxygen saturation decreased [None]
  - Anaemia [None]
  - Acute kidney injury [None]
  - Alanine aminotransferase increased [None]
  - Lung disorder [None]
  - Noninfective mastoiditis [None]
  - Paranasal sinus inflammation [None]
  - Pneumonitis [None]
  - Lower respiratory tract infection [None]
  - Thrombocytopenia [None]
  - Otitis media [None]
  - Tachycardia [None]
  - Blood lactic acid increased [None]

NARRATIVE: CASE EVENT DATE: 20230113
